FAERS Safety Report 7521877-7 (Version None)
Quarter: 2011Q2

REPORT INFORMATION
  Report Type: 
  Country: None (occurrence: None)
  Receive Date: 20110603
  Receipt Date: 20110523
  Transmission Date: 20111010
  Serious: Yes (Death, Disabling, Other)
  Sender: FDA-Public Use
  Company Number: US-CELGENEUS-163-21880-10061680

PATIENT
  Sex: Male

DRUGS (1)
  1. REVLIMID [Suspect]
     Dosage: 15 MILLIGRAM
     Route: 048
     Dates: start: 20100524, end: 20101101

REACTIONS (7)
  - FALL [None]
  - DIARRHOEA [None]
  - DEHYDRATION [None]
  - MULTIPLE MYELOMA [None]
  - SEPSIS [None]
  - ASTHENIA [None]
  - ANKLE FRACTURE [None]
